FAERS Safety Report 6846996-X (Version None)
Quarter: 2010Q3

REPORT INFORMATION
  Report Type: 
  Country: None (occurrence: None)
  Receive Date: 20100714
  Receipt Date: 20100629
  Transmission Date: 20110219
  Serious: Yes (Other)
  Sender: FDA-Public Use
  Company Number: 7001716

PATIENT
  Age: 47 Year
  Sex: Female

DRUGS (3)
  1. REBIF [Suspect]
     Indication: PRODUCT USED FOR UNKNOWN INDICATION
     Dosage: 22 MCG, 3 N 1 WK, SUBCUTANEOUS, 44 MCG, SUBCUTANEOUS
     Route: 058
     Dates: start: 20100320, end: 20100101
  2. REBIF [Suspect]
     Indication: PRODUCT USED FOR UNKNOWN INDICATION
     Dosage: 22 MCG, 3 N 1 WK, SUBCUTANEOUS, 44 MCG, SUBCUTANEOUS
     Route: 058
     Dates: start: 20100101
  3. TYLENOL (COTYLENOL) [Concomitant]

REACTIONS (2)
  - OPTIC NERVE DISORDER [None]
  - VISION BLURRED [None]
